FAERS Safety Report 8580968-2 (Version None)
Quarter: 2012Q3

REPORT INFORMATION
  Report Type: 
  Country: None (occurrence: None)
  Receive Date: 20120809
  Receipt Date: 20120806
  Transmission Date: 20120928
  Serious: No
  Sender: FDA-Public Use
  Company Number: US-PFIZER INC-2012191687

PATIENT
  Sex: Female

DRUGS (2)
  1. LYRICA [Suspect]
     Indication: HERPES ZOSTER
     Dosage: UNK
  2. LYRICA [Suspect]
     Indication: NEURALGIA

REACTIONS (1)
  - DRUG INEFFECTIVE [None]
